FAERS Safety Report 7120196-0 (Version None)
Quarter: 2010Q4

REPORT INFORMATION
  Report Type: 
  Country: None (occurrence: None)
  Receive Date: 20101123
  Receipt Date: 20101117
  Transmission Date: 20110411
  Serious: Yes (Hospitalization, Other)
  Sender: FDA-Public Use
  Company Number: DE-ABBOTT-10P-062-0686202-00

PATIENT
  Sex: Male

DRUGS (1)
  1. HUMIRA [Suspect]
     Indication: CROHN'S DISEASE
     Dosage: 40MG EVERY 3 WEEKS
     Dates: start: 20090605

REACTIONS (3)
  - FOOD INTOLERANCE [None]
  - MALNUTRITION [None]
  - SMALL INTESTINAL RESECTION [None]
